FAERS Safety Report 5705190-6 (Version None)
Quarter: 2008Q2

REPORT INFORMATION
  Report Type: 
  Country: None (occurrence: None)
  Receive Date: 20080410
  Receipt Date: 20080401
  Transmission Date: 20081010
  Serious: Yes (Hospitalization)
  Sender: FDA-Public Use
  Company Number: WAES 0704USA04204

PATIENT
  Age: 57 Year
  Sex: Male

DRUGS (12)
  1. ZETIA [Suspect]
     Indication: BLOOD CHOLESTEROL
     Dosage: 10 MG/DAILY/PO
     Route: 048
  2. CIPRO [Suspect]
     Indication: PROPHYLAXIS
     Dosage: 250 MG/DAILY
  3. ASPIRIN [Suspect]
     Indication: PROPHYLAXIS
     Dosage: 81 MG/DAILY
     Dates: start: 19860101, end: 20030810
  4. IRINOTECAN HCL [Suspect]
     Indication: PROPHYLAXIS
     Dosage: 125 MG/M [2] DAILY/IV
     Route: 042
     Dates: start: 20030811, end: 20030811
  5. IRINOTECAN HCL [Suspect]
     Indication: PROPHYLAXIS
     Dosage: 125 MG/M [2] DAILY/IV
     Route: 042
     Dates: start: 20030818, end: 20030818
  6. FLUOROURACIL [Suspect]
     Indication: COLORECTAL CANCER METASTATIC
     Dosage: 500 MG/M [2]/DAILY/IV
     Route: 042
     Dates: start: 20030811, end: 20030811
  7. FLUOROURACIL [Suspect]
     Indication: COLORECTAL CANCER METASTATIC
     Dosage: 500 MG/M [2]/DAILY/IV
     Route: 042
     Dates: start: 20030818, end: 20030818
  8. XANAX [Suspect]
     Indication: SLEEP DISORDER
     Dosage: 0.5 MG/DAILY/PO
     Route: 048
  9. LEUCOVORIN CALCIUM [Suspect]
     Indication: COLORECTAL CANCER METASTATIC
     Dosage: 20 MG/M[2]/WKY/IV
     Route: 042
     Dates: start: 20030811, end: 20030818
  10. TOPROL-XL [Suspect]
     Indication: HYPERTENSION
     Dosage: 50 MG/DAILY/PO
     Route: 048
  11. PROTONIX [Suspect]
     Indication: HYPERTENSION
     Dosage: 40 MG/DAILY/PO
     Route: 048
  12. AMIODARONE HCL [Suspect]
     Dosage: 200 MG/BID/PO
     Route: 048

REACTIONS (6)
  - ANGINA PECTORIS [None]
  - BLOOD SODIUM DECREASED [None]
  - HAEMATOCRIT DECREASED [None]
  - HAEMOGLOBIN DECREASED [None]
  - INTESTINAL OBSTRUCTION [None]
  - WHITE BLOOD CELL COUNT INCREASED [None]
